FAERS Safety Report 7525348-3 (Version None)
Quarter: 2011Q2

REPORT INFORMATION
  Report Type: 
  Country: None (occurrence: None)
  Receive Date: 20110526
  Receipt Date: 20110512
  Transmission Date: 20111010
  Serious: Yes (Congenital Anomaly)
  Sender: FDA-Public Use
  Company Number: 1000017492

PATIENT

DRUGS (3)
  1. ESCITALOPRAM [Suspect]
     Dosage: 20 MG (20 MG,1 IN 1 D),TRANSPLACENTAL
     Route: 064
  2. YASMINELLE (DROSPIRENONE, ETHINYL ESTRADIOL) (DROSPIRENONE, ETHINYL ES [Concomitant]
  3. CYMBALTA [Suspect]
     Dosage: 60 MG (60 MG, 1 IN 1 D),TRANSPLACENTAL
     Route: 064

REACTIONS (4)
  - PREGNANCY [None]
  - AMNIOTIC FLUID VOLUME DECREASED [None]
  - CAESAREAN SECTION [None]
  - DRUG EXPOSURE DURING PREGNANCY [None]
